FAERS Safety Report 10221173 (Version 1)
Quarter: 2014Q2

REPORT INFORMATION
  Report Type: Spontaneous
  Country: US (occurrence: US)
  Receive Date: 20140606
  Receipt Date: 20140606
  Transmission Date: 20141212
  Serious: No
  Sender: FDA-Public Use
  Company Number: US-GLAXOSMITHKLINE-A1062708A

PATIENT
  Age: 75 Year
  Sex: Male

DRUGS (2)
  1. BREO ELLIPTA [Suspect]
     Indication: PRODUCT USED FOR UNKNOWN INDICATION
     Route: 055
     Dates: start: 20140113
  2. NYSTATIN [Concomitant]

REACTIONS (2)
  - Candida infection [Unknown]
  - Oropharyngeal pain [Unknown]
